FAERS Safety Report 7909587-5 (Version None)
Quarter: 2011Q4

REPORT INFORMATION
  Report Type: 
  Country: None (occurrence: None)
  Receive Date: 20111111
  Receipt Date: 20110726
  Transmission Date: 20120403
  Serious: No
  Sender: FDA-Public Use
  Company Number: US-BAYER-2011-068086

PATIENT
  Sex: Female

DRUGS (2)
  1. IBUPROFEN (ADVIL) [Concomitant]
     Dosage: 3 DF, UNK
  2. ALEVE (CAPLET) [Suspect]
     Dosage: 4 DF, UNK
     Route: 048

REACTIONS (1)
  - NO ADVERSE EVENT [None]
